FAERS Safety Report 9833471 (Version 4)
Quarter: 2014Q3

REPORT INFORMATION
  Report Type: Report from Study
  Country: US (occurrence: US)
  Receive Date: 20140122
  Receipt Date: 20140715
  Transmission Date: 20150326
  Serious: Yes (Hospitalization, Disabling)
  Sender: FDA-Public Use
  Company Number: US-AMGEN-USACT2013084080

PATIENT
  Age: 53 Year
  Sex: Female
  Weight: 83.9 kg

DRUGS (16)
  1. ZEMPLAR [Concomitant]
     Active Substance: PARICALCITOL
     Dosage: 1 MUG, UNK
     Route: 042
     Dates: start: 20130813
  2. VITAMIN D3 [Concomitant]
     Active Substance: CHOLECALCIFEROL
     Dosage: 1000 IU, UNK
     Route: 048
     Dates: start: 20130101
  3. EPOGEN [Concomitant]
     Active Substance: ERYTHROPOIETIN
     Dosage: 2200 UNK, UNK
     Route: 042
     Dates: start: 20130725
  4. NIFEDIPINE. [Concomitant]
     Active Substance: NIFEDIPINE
     Dosage: 60 MG, UNK
     Route: 048
     Dates: start: 19920601
  5. B COMPLEX                          /00212701/ [Concomitant]
     Dosage: 1 UNK, UNK
     Route: 048
     Dates: start: 20130101
  6. COLACE [Concomitant]
     Active Substance: DOCUSATE SODIUM
     Dosage: 100 MG, UNK
     Route: 048
     Dates: start: 20120501
  7. RENVELA [Concomitant]
     Active Substance: SEVELAMER CARBONATE
     Dosage: 800 MG, UNK
     Route: 048
     Dates: start: 20130101
  8. NOVOLOG [Concomitant]
     Active Substance: INSULIN ASPART
     Dosage: 6-20, UNK
     Route: 058
     Dates: start: 20131024
  9. TUMS EX [Concomitant]
     Active Substance: CALCIUM CARBONATE
     Dosage: 1000 MG, UNK
     Route: 048
     Dates: start: 20130926
  10. LISINOPRIL. [Concomitant]
     Active Substance: LISINOPRIL
     Dosage: 5 TO 40 MG
     Route: 048
     Dates: start: 20121101, end: 20131127
  11. VENOFER [Concomitant]
     Active Substance: IRON SUCROSE
     Dosage: 50 TO 100 MG, UNK
     Route: 042
     Dates: start: 20130804
  12. CARVEDILOL. [Concomitant]
     Active Substance: CARVEDILOL
     Dosage: 25 MG, UNK
     Route: 048
     Dates: start: 19950601
  13. LEVEMIR [Concomitant]
     Active Substance: INSULIN DETEMIR
     Dosage: 3 ML, UNK
     Route: 058
     Dates: start: 20130101
  14. FERRITIN [Concomitant]
     Active Substance: FERRITIN
     Dosage: 50 G, UNK
     Route: 042
     Dates: start: 201108
  15. CINACALCET HCL [Suspect]
     Active Substance: CINACALCET HYDROCHLORIDE
     Indication: HYPERPARATHYROIDISM SECONDARY
     Dosage: UNK
     Route: 065
     Dates: start: 20130903, end: 20131123
  16. INFLUENZA VACCINE [Concomitant]
     Active Substance: INFLUENZA VIRUS VACCINE
     Dosage: 0.5 ML, UNK
     Route: 030
     Dates: start: 20131003, end: 20131003

REACTIONS (9)
  - Urinary tract infection [Recovered/Resolved]
  - Sepsis [Recovered/Resolved]
  - Ascites [Recovered/Resolved]
  - Hydronephrosis [Recovered/Resolved]
  - Hyperkalaemia [Recovered/Resolved]
  - Atrial fibrillation [Recovered/Resolved]
  - Vomiting [Recovered/Resolved]
  - Hypertension [Recovered/Resolved]
  - Impaired gastric emptying [Recovered/Resolved]

NARRATIVE: CASE EVENT DATE: 20131125
